FAERS Safety Report 7858053-4 (Version None)
Quarter: 2011Q4

REPORT INFORMATION
  Report Type: 
  Country: None (occurrence: None)
  Receive Date: 20111027
  Receipt Date: 20111013
  Transmission Date: 20120403
  Serious: Yes (Other)
  Sender: FDA-Public Use
  Company Number: US-BAYER-2011-012760

PATIENT
  Sex: Female
  Weight: 73 kg

DRUGS (8)
  1. YAZ [Suspect]
     Indication: ORAL CONTRACEPTION
     Dosage: UNK
     Dates: start: 20080801, end: 20091001
  2. IBUPROFEN [Concomitant]
  3. LAMICTAL [Concomitant]
  4. MINOCYCLINE HCL [Concomitant]
     Dosage: UNK
     Dates: start: 20080801, end: 20100201
  5. ANTIBIOTICS [Concomitant]
  6. PROZAC [Concomitant]
  7. PHENTERMINE [Concomitant]
  8. MULTI-VITAMINS [Concomitant]
     Dosage: UNK UNK, QD

REACTIONS (4)
  - FEAR [None]
  - CHOLECYSTITIS CHRONIC [None]
  - GALLBLADDER DISORDER [None]
  - PAIN [None]
